FAERS Safety Report 5871638-X (Version None)
Quarter: 2008Q3

REPORT INFORMATION
  Report Type: 
  Country: None (occurrence: None)
  Receive Date: 20080904
  Receipt Date: 20080904
  Transmission Date: 20090109
  Serious: No
  Sender: FDA-Public Use
  Company Number: None

PATIENT
  Sex: Male
  Weight: 82.5547 kg

DRUGS (2)
  1. COREG CR [Suspect]
     Indication: HYPERTENSION
     Dosage: 20 MG 1 DAILY
     Dates: start: 20080701, end: 20080818
  2. DEMADEX [Suspect]
     Indication: DIURETIC THERAPY
     Dosage: 10 MG 1 DAILY
     Dates: start: 20080701, end: 20080823

REACTIONS (2)
  - GAIT DISTURBANCE [None]
  - PRESYNCOPE [None]
